FAERS Safety Report 19688080 (Version 1)
Quarter: 2021Q3

REPORT INFORMATION
  Report Type: Report from Study
  Country: None (occurrence: US)
  Receive Date: 20210812
  Receipt Date: 20210812
  Transmission Date: 20211014
  Serious: Yes (Hospitalization, Other)
  Sender: FDA-Public Use
  Company Number: US-ABBVIE-21K-163-4030172-00

PATIENT
  Sex: Male

DRUGS (1)
  1. HUMIRA [Suspect]
     Active Substance: ADALIMUMAB
     Indication: COLITIS ULCERATIVE
     Dosage: CITRATE FREE
     Route: 058
     Dates: start: 20210724, end: 2021

REACTIONS (14)
  - Sepsis [Unknown]
  - Necrotising soft tissue infection [Not Recovered/Not Resolved]
  - Arthralgia [Not Recovered/Not Resolved]
  - Weight bearing difficulty [Unknown]
  - Upper limb fracture [Not Recovered/Not Resolved]
  - Atrial fibrillation [Recovered/Resolved]
  - Joint swelling [Not Recovered/Not Resolved]
  - Poor peripheral circulation [Unknown]
  - Malaise [Unknown]
  - Joint effusion [Unknown]
  - Dysphagia [Not Recovered/Not Resolved]
  - Gait inability [Unknown]
  - Fall [Unknown]
  - Feeding disorder [Unknown]

NARRATIVE: CASE EVENT DATE: 2021
